FAERS Safety Report 7202130-8 (Version None)
Quarter: 2010Q4

REPORT INFORMATION
  Report Type: 
  Country: None (occurrence: None)
  Receive Date: 20101229
  Receipt Date: 20101215
  Transmission Date: 20110411
  Serious: Yes (Other)
  Sender: FDA-Public Use
  Company Number: PHHY2010CA83625

PATIENT
  Sex: Female

DRUGS (2)
  1. CLOZARIL [Suspect]
     Indication: SCHIZOPHRENIA
     Dosage: 400 MG, QHS
     Route: 048
     Dates: start: 20080611, end: 20101209
  2. EFFEXOR [Concomitant]

REACTIONS (3)
  - BORDERLINE PERSONALITY DISORDER [None]
  - DIABETES MELLITUS [None]
  - WEIGHT INCREASED [None]
